FAERS Safety Report 25176636 (Version 2)
Quarter: 2025Q2

REPORT INFORMATION
  Report Type: Report from Study
  Country: US (occurrence: US)
  Receive Date: 20250409
  Receipt Date: 20250508
  Transmission Date: 20250717
  Serious: No
  Sender: SUNOVION
  Company Number: US-SMPA-2025SPA003049AA

PATIENT

DRUGS (6)
  1. ORGOVYX [Suspect]
     Active Substance: RELUGOLIX
     Indication: Prostate cancer
     Dosage: 120 MG, QD
     Route: 048
     Dates: start: 20250207
  2. AMLODIPINE BESYLATE [Concomitant]
     Active Substance: AMLODIPINE BESYLATE
     Route: 048
  3. ATENOLOL [Concomitant]
     Active Substance: ATENOLOL
     Route: 048
  4. Centrum adults [Concomitant]
     Route: 048
  5. TYLENOL [Concomitant]
     Active Substance: ACETAMINOPHEN
     Route: 048
  6. Barley grass [Concomitant]
     Route: 065

REACTIONS (3)
  - Headache [Unknown]
  - Incorrect dose administered [Unknown]
  - Product use issue [Unknown]

NARRATIVE: CASE EVENT DATE: 20250310
